FAERS Safety Report 23948025 (Version 1)
Quarter: 2024Q2

REPORT INFORMATION
  Report Type: Spontaneous
  Country: US (occurrence: US)
  Receive Date: 20240607
  Receipt Date: 20240607
  Transmission Date: 20240716
  Serious: Yes (Hospitalization)
  Sender: FDA-Public Use
  Company Number: US-STRIDES ARCOLAB LIMITED-2024SP006541

PATIENT
  Age: 64 Year
  Sex: Male

DRUGS (7)
  1. ATENOLOL [Suspect]
     Active Substance: ATENOLOL
     Indication: Hypertension
     Dosage: 25 MILLIGRAM, QD
     Route: 065
  2. DOXAZOSIN MESYLATE [Suspect]
     Active Substance: DOXAZOSIN MESYLATE
     Indication: Hypertension
     Dosage: UNK
     Route: 065
  3. DOXAZOSIN MESYLATE [Suspect]
     Active Substance: DOXAZOSIN MESYLATE
     Indication: Phaeochromocytoma
  4. PEMBROLIZUMAB [Concomitant]
     Active Substance: PEMBROLIZUMAB
     Indication: Phaeochromocytoma
     Dosage: UNK
     Route: 042
  5. PEMBROLIZUMAB [Concomitant]
     Active Substance: PEMBROLIZUMAB
     Indication: Metastasis
  6. AXITINIB [Concomitant]
     Active Substance: AXITINIB
     Indication: Phaeochromocytoma
     Dosage: UNK
     Route: 048
  7. AXITINIB [Concomitant]
     Active Substance: AXITINIB
     Indication: Metastasis

REACTIONS (3)
  - Hypertension [Unknown]
  - Drug ineffective [Unknown]
  - Off label use [Unknown]
